FAERS Safety Report 24416922 (Version 1)
Quarter: 2024Q4

REPORT INFORMATION
  Report Type: Spontaneous
  Country: US (occurrence: US)
  Receive Date: 20241009
  Receipt Date: 20241009
  Transmission Date: 20250115
  Serious: No
  Sender: ROCHE
  Company Number: US-ROCHE-10000101877

PATIENT
  Sex: Male

DRUGS (1)
  1. HEMLIBRA [Suspect]
     Active Substance: EMICIZUMAB-KXWH
     Indication: Factor VIII deficiency
     Dosage: STRENGTH: 105MG/0.7ML, 60MG/0.4ML
     Route: 058
     Dates: start: 202310

REACTIONS (3)
  - Haemorrhage [Unknown]
  - Hypoaesthesia teeth [Unknown]
  - Peripheral swelling [Unknown]
